FAERS Safety Report 10465110 (Version 3)
Quarter: 2015Q1

REPORT INFORMATION
  Report Type: Other
  Country: GR (occurrence: GR)
  Receive Date: 20140919
  Receipt Date: 20150203
  Transmission Date: 20150720
  Serious: Yes (Death, Other)
  Sender: FDA-Public Use
  Company Number: GR-MYLANLABS-2014M1004831

PATIENT

DRUGS (11)
  1. TEVAGRASTIM [Suspect]
     Active Substance: FILGRASTIM
     Indication: WHITE BLOOD CELL COUNT DECREASED
     Dosage: ADMINISTERED ON 10/7 AND 12/7/2014, ACCORDING TO THE MOTHER
     Dates: start: 20140710, end: 20140712
  2. ZYLORIC [Concomitant]
     Active Substance: ALLOPURINOL
     Dosage: CONTINUOUSLY
     Dates: start: 20140702
  3. ZOFRON                             /00955301/ [Suspect]
     Active Substance: ONDANSETRON
     Dosage: 8MG WHEN HAVING NAUSEA AND UP TO 2 TABLETS PER DAY
  4. ENDOXAN                            /00021101/ [Suspect]
     Active Substance: CYCLOPHOSPHAMIDE
     Indication: HODGKIN^S DISEASE
     Dosage: UNK
     Route: 042
     Dates: start: 20140702, end: 20140704
  5. ETOPOSIDE. [Suspect]
     Active Substance: ETOPOSIDE
     Indication: HODGKIN^S DISEASE
     Dosage: 300MG DAYS1-3 INTRAVENOUSLY
     Route: 042
     Dates: start: 20140702, end: 20140704
  6. CORTISONE [Suspect]
     Active Substance: CORTISONE\HYDROCORTISONE
     Indication: HODGKIN^S DISEASE
     Dosage: UNK
     Dates: start: 20140702, end: 20140704
  7. ZANTAC [Suspect]
     Active Substance: RANITIDINE HYDROCHLORIDE
     Dosage: FOR THE DAYS CORTISONE IS ADMINISTERED (1 IN 12 HOUR)
     Dates: start: 20140702
  8. EMEND [Suspect]
     Active Substance: APREPITANT
     Indication: PROPHYLAXIS OF NAUSEA AND VOMITING
     Dosage: 125-80-80 THE 3 FIRST DAYS OF EACH CYCLE
     Dates: start: 20140702
  9. ONDANSETRON GENERICS [Suspect]
     Active Substance: ONDANSETRON
     Indication: PROPHYLAXIS OF NAUSEA AND VOMITING
     Dosage: UNK
     Dates: start: 20140702, end: 20140704
  10. ADRIBLASTINA [Suspect]
     Active Substance: DOXORUBICIN HYDROCHLORIDE
     Indication: HODGKIN^S DISEASE
     Dosage: 55 MG DAY 1 INTRAVENOUSLY
     Route: 042
     Dates: start: 20140702, end: 20140704
  11. PREZOLON [Suspect]
     Active Substance: PREDNISOLONE
     Indication: HODGKIN^S DISEASE
     Dosage: 20MG 3 TIMES A DAY FOR DAYS1-14
     Route: 048

REACTIONS (8)
  - Neutropenia [Unknown]
  - Diarrhoea [Unknown]
  - Myocardial ischaemia [Fatal]
  - Pyrexia [Unknown]
  - Vomiting [Unknown]
  - Aspiration [Fatal]
  - Tachycardia [Unknown]
  - Cardiac arrest [Fatal]

NARRATIVE: CASE EVENT DATE: 20140709
